FAERS Safety Report 6368677-1 (Version None)
Quarter: 2009Q3

REPORT INFORMATION
  Report Type: 
  Country: None (occurrence: None)
  Receive Date: 20090917
  Receipt Date: 20090917
  Transmission Date: 20100115
  Serious: No
  Sender: FDA-Public Use
  Company Number: None

PATIENT

DRUGS (1)
  1. DIPYRIDAMOLE [Suspect]
     Indication: CARDIAC IMAGING PROCEDURE

REACTIONS (2)
  - EYE PAIN [None]
  - HEADACHE [None]
